FAERS Safety Report 9481867 (Version 2)
Quarter: 2013Q3

REPORT INFORMATION
  Report Type: Spontaneous
  Country: US (occurrence: US)
  Receive Date: 20130828
  Receipt Date: 20130828
  Transmission Date: 20140515
  Serious: Yes (Hospitalization)
  Sender: FDA-Public Use
  Company Number: US-AMGEN-KDL125635

PATIENT
  Age: 52 Year
  Sex: Female

DRUGS (3)
  1. ENBREL [Suspect]
     Indication: RHEUMATOID ARTHRITIS
     Dosage: 50 MG, QWK
     Route: 058
     Dates: start: 20010501
  2. KINERET [Concomitant]
     Dosage: 100 MG, QD
  3. METHOTREXATE [Concomitant]
     Dosage: 2.5 MG, QD
     Route: 048

REACTIONS (17)
  - Systemic lupus erythematosus [Recovered/Resolved]
  - Gastric infection [Unknown]
  - Postoperative wound infection [Unknown]
  - Headache [Unknown]
  - Rheumatoid arthritis [Not Recovered/Not Resolved]
  - Concussion [Unknown]
  - Fall [Unknown]
  - Renal disorder [Unknown]
  - Road traffic accident [Unknown]
  - Feeding disorder [Unknown]
  - Gastrointestinal disorder [Unknown]
  - Rib fracture [Unknown]
  - Wrist fracture [Unknown]
  - Joint injury [Unknown]
  - Nasopharyngitis [Unknown]
  - Pneumonia bacterial [Unknown]
  - Decreased appetite [Unknown]
